FAERS Safety Report 7410341-1 (Version None)
Quarter: 2011Q2

REPORT INFORMATION
  Report Type: 
  Country: None (occurrence: None)
  Receive Date: 20110412
  Receipt Date: 20110330
  Transmission Date: 20111010
  Serious: Yes (Other)
  Sender: FDA-Public Use
  Company Number: CA-GENENTECH-308453

PATIENT
  Sex: Female

DRUGS (3)
  1. LUCENTIS [Suspect]
     Dosage: UNK
     Route: 031
     Dates: start: 20100913
  2. ASPIRIN [Concomitant]
     Indication: PRODUCT USED FOR UNKNOWN INDICATION
     Dosage: UNK
     Dates: start: 20100909, end: 20100911
  3. LUCENTIS [Suspect]
     Indication: PRODUCT USED FOR UNKNOWN INDICATION
     Dosage: 0.5 MG, UNK
     Route: 031
     Dates: start: 20091005

REACTIONS (5)
  - VISUAL ACUITY REDUCED [None]
  - VISUAL IMPAIRMENT [None]
  - EYE PAIN [None]
  - INTRAOCULAR PRESSURE INCREASED [None]
  - VITREOUS FLOATERS [None]
